FAERS Safety Report 12365635 (Version 1)
Quarter: 2016Q2

REPORT INFORMATION
  Report Type: Spontaneous
  Country: US (occurrence: None)
  Receive Date: 20160512
  Receipt Date: 20160512
  Transmission Date: 20160815
  Serious: Yes (Other)
  Sender: FDA-Public Use
  Company Number: None

PATIENT
  Age: 37 Year
  Sex: Female
  Weight: 108.86 kg

DRUGS (2)
  1. SPRINTEC [Concomitant]
     Active Substance: ETHINYL ESTRADIOL\NORGESTIMATE
  2. ESTARYLLA [Suspect]
     Active Substance: ETHINYL ESTRADIOL\NORGESTIMATE
     Indication: CONTRACEPTION
     Dosage: 28 TABLET (S) IN THE MORNING TAKEN BY MOUTH
     Route: 048

REACTIONS (3)
  - Peripheral swelling [None]
  - Gait disturbance [None]
  - Skin exfoliation [None]

NARRATIVE: CASE EVENT DATE: 20160406
